FAERS Safety Report 12919895 (Version 1)
Quarter: 2016Q4

REPORT INFORMATION
  Report Type: Spontaneous
  Country: US (occurrence: US)
  Receive Date: 20161108
  Receipt Date: 20161108
  Transmission Date: 20170207
  Serious: No
  Sender: FDA-Public Use
  Company Number: US-PFIZER INC-2016160352

PATIENT
  Age: 30 Year
  Sex: Female
  Weight: 113.4 kg

DRUGS (15)
  1. LYRICA [Suspect]
     Active Substance: PREGABALIN
     Indication: CYSTITIS INTERSTITIAL
     Dosage: 25 MG, 2X/DAY
     Route: 048
     Dates: start: 20160203
  2. VALIUM [Concomitant]
     Active Substance: DIAZEPAM
     Indication: VULVOVAGINAL PAIN
     Dosage: 10 MG, AS NEEDED (QHS UP TO BID)
     Route: 067
  3. PYRIDIUM [Concomitant]
     Active Substance: PHENAZOPYRIDINE
     Indication: PAIN
     Dosage: 200 MG, AS NEEDED
     Route: 048
  4. ULTRAM [Concomitant]
     Active Substance: TRAMADOL HYDROCHLORIDE
     Dosage: 50 MG, UNK
  5. VITAMIN D3 [Concomitant]
     Active Substance: CHOLECALCIFEROL
     Dosage: 4000 IU, DAILY
     Route: 048
  6. BUPIVACAINE. [Concomitant]
     Active Substance: BUPIVACAINE
     Dosage: 100 MG, UNK
     Dates: start: 20160325
  7. LYRICA [Suspect]
     Active Substance: PREGABALIN
     Indication: FIBROMYALGIA
     Dosage: 25 MG, 1X/DAY
     Route: 048
  8. PRILOSEC [Concomitant]
     Active Substance: OMEPRAZOLE MAGNESIUM
     Dosage: 40 MG, 1X/DAY (EVERY MORNING 30 MINUTES BEFORE BREAKFAST)
     Route: 048
  9. BUPIVACAINE. [Concomitant]
     Active Substance: BUPIVACAINE
     Dosage: 100 MG, UNK
     Dates: start: 20160429
  10. LYRICA [Suspect]
     Active Substance: PREGABALIN
     Indication: PELVIC DISCOMFORT
     Dosage: 50 MG, 2X/DAY
     Route: 048
  11. TYLENOL [Concomitant]
     Active Substance: ACETAMINOPHEN
     Indication: PAIN
     Dosage: 500 MG, AS NEEDED (160MG/5ML SUSPENSION)
     Route: 048
  12. NAPROSYN [Concomitant]
     Active Substance: NAPROXEN
     Dosage: 500 MG, 2X/DAY (2 TIMES DAILY WITH MEALS)
     Route: 048
  13. PERCOCET [Concomitant]
     Active Substance: ACETAMINOPHEN\OXYCODONE HYDROCHLORIDE
     Indication: PAIN
     Dosage: UNK UNK, AS NEEDED (OXYCODONE 5MG-ACETAMINOPHEN 325MG), (TAKE 1-2 TABLETS EVERY 4 HOURS  )
     Route: 048
  14. ORTHO CYCLEN [Concomitant]
     Active Substance: ETHINYL ESTRADIOL\NORGESTIMATE
     Dosage: 1 DF, DAILY (ETHINYLESTRADIOL 35MG, NORGESTIMATE 0.25MG)
     Route: 048
  15. CALCIUM-MAGNESIUM ZINC [Concomitant]
     Dosage: UNK

REACTIONS (1)
  - Headache [Recovered/Resolved]

NARRATIVE: CASE EVENT DATE: 20160801
